FAERS Safety Report 11231472 (Version 2)
Quarter: 2015Q3

REPORT INFORMATION
  Report Type: Spontaneous
  Country: JP (occurrence: JP)
  Receive Date: 20150701
  Receipt Date: 20150706
  Transmission Date: 20151125
  Serious: Yes (Other)
  Sender: FDA-Public Use
  Company Number: JP-MEDA-2015060072

PATIENT
  Sex: Male

DRUGS (3)
  1. LUPRAC [Suspect]
     Active Substance: TORSEMIDE
     Indication: OEDEMA
     Route: 048
  2. SELARA [Concomitant]
     Active Substance: EPLERENONE
  3. LUPRAC [Suspect]
     Active Substance: TORSEMIDE
     Indication: CARDIAC DISORDER
     Route: 048

REACTIONS (2)
  - Gynaecomastia [Recovering/Resolving]
  - Mastitis [Unknown]
